FAERS Safety Report 5836086-7 (Version None)
Quarter: 2008Q3

REPORT INFORMATION
  Report Type: 
  Country: None (occurrence: None)
  Receive Date: 20080805
  Receipt Date: 20080721
  Transmission Date: 20090109
  Serious: Yes (Hospitalization)
  Sender: FDA-Public Use
  Company Number: UA-1166655

PATIENT
  Age: 82 Year
  Sex: Female

DRUGS (1)
  1. TRAVATAN (TRAVOPROST) 0.004 % SOLUTION LOT# 07A118 EYE DROPS, SUSPENSI [Suspect]
     Indication: GLAUCOMA
     Dosage: OPHTHALMIC
     Route: 047

REACTIONS (1)
  - EPISTAXIS [None]
